FAERS Safety Report 7466305-5 (Version None)
Quarter: 2011Q2

REPORT INFORMATION
  Report Type: 
  Country: None (occurrence: None)
  Receive Date: 20110505
  Receipt Date: 20110505
  Transmission Date: 20111010
  Serious: Yes (Hospitalization)
  Sender: FDA-Public Use
  Company Number: None

PATIENT

DRUGS (2)
  1. PROVOCHOLINE [Suspect]
  2. PROVOCHOLINE [Suspect]
     Indication: BRONCHIAL HYPERREACTIVITY
     Dosage: INHALATION
     Route: 055
     Dates: start: 20110101

REACTIONS (2)
  - TACHYCARDIA [None]
  - UNEVALUABLE EVENT [None]
